FAERS Safety Report 11134389 (Version 2)
Quarter: 2016Q3

REPORT INFORMATION
  Report Type: Report from Study
  Country: US (occurrence: US)
  Receive Date: 20150525
  Receipt Date: 20160905
  Transmission Date: 20161109
  Serious: Yes (Other)
  Sender: FDA-Public Use
  Company Number: US-ROCHE-1581082

PATIENT
  Age: 40 Year
  Sex: Male
  Weight: 131 kg

DRUGS (28)
  1. BEVACIZUMAB [Suspect]
     Active Substance: BEVACIZUMAB
     Dosage: COURSE 18
     Route: 042
     Dates: start: 20160323
  2. BEVACIZUMAB [Suspect]
     Active Substance: BEVACIZUMAB
     Dosage: COURSE 8
     Route: 042
     Dates: start: 20150814
  3. IPILIMUMAB [Suspect]
     Active Substance: IPILIMUMAB
     Dosage: COURSE 4.
     Route: 042
     Dates: start: 20150521
  4. HCTZ [Concomitant]
     Active Substance: HYDROCHLOROTHIAZIDE
  5. BEVACIZUMAB [Suspect]
     Active Substance: BEVACIZUMAB
     Dosage: COURSE 20
     Route: 042
     Dates: start: 20160505
  6. BEVACIZUMAB [Suspect]
     Active Substance: BEVACIZUMAB
     Dosage: COURSE 10
     Route: 042
     Dates: start: 20150924
  7. IPILIMUMAB [Suspect]
     Active Substance: IPILIMUMAB
     Dosage: COURSE 8.
     Route: 042
     Dates: start: 20150814
  8. BEVACIZUMAB [Suspect]
     Active Substance: BEVACIZUMAB
     Indication: MALIGNANT MELANOMA
     Dosage: COURSE 1.
     Route: 042
     Dates: start: 20150319
  9. BEVACIZUMAB [Suspect]
     Active Substance: BEVACIZUMAB
     Dosage: COURSE 5
     Route: 042
     Dates: start: 20150611
  10. BEVACIZUMAB [Suspect]
     Active Substance: BEVACIZUMAB
     Dosage: COURSE 17
     Route: 042
     Dates: start: 20160303
  11. BEVACIZUMAB [Suspect]
     Active Substance: BEVACIZUMAB
     Dosage: COURSE 7
     Route: 042
     Dates: start: 20150727
  12. BEVACIZUMAB [Suspect]
     Active Substance: BEVACIZUMAB
     Dosage: COURSE 19
     Route: 042
     Dates: start: 20160413
  13. IPILIMUMAB [Suspect]
     Active Substance: IPILIMUMAB
     Dosage: COURSE 3.
     Route: 042
     Dates: start: 20150430
  14. BEVACIZUMAB [Suspect]
     Active Substance: BEVACIZUMAB
     Dosage: COURSE 4
     Route: 042
     Dates: start: 20150521
  15. BEVACIZUMAB [Suspect]
     Active Substance: BEVACIZUMAB
     Dosage: COURSE 14
     Route: 042
     Dates: start: 20151217
  16. BEVACIZUMAB [Suspect]
     Active Substance: BEVACIZUMAB
     Dosage: COURSE 12
     Route: 042
     Dates: start: 20151104
  17. BEVACIZUMAB [Suspect]
     Active Substance: BEVACIZUMAB
     Dosage: COURSE 13
     Route: 042
     Dates: start: 20151125
  18. BEVACIZUMAB [Suspect]
     Active Substance: BEVACIZUMAB
     Dosage: COURSE 11
     Route: 042
     Dates: start: 20151014
  19. IPILIMUMAB [Suspect]
     Active Substance: IPILIMUMAB
     Dosage: COURSE 20.
     Route: 042
     Dates: start: 20160505
  20. IPILIMUMAB [Suspect]
     Active Substance: IPILIMUMAB
     Dosage: COURSE 12.
     Route: 042
     Dates: start: 20151104
  21. BEVACIZUMAB [Suspect]
     Active Substance: BEVACIZUMAB
     Dosage: COURSE 6
     Route: 042
     Dates: start: 20150702
  22. BEVACIZUMAB [Suspect]
     Active Substance: BEVACIZUMAB
     Dosage: COURSE 15
     Route: 042
     Dates: start: 20160114
  23. BEVACIZUMAB [Suspect]
     Active Substance: BEVACIZUMAB
     Dosage: COURSE 16
     Route: 042
     Dates: start: 20160201
  24. BEVACIZUMAB [Suspect]
     Active Substance: BEVACIZUMAB
     Dosage: COURSE 9
     Route: 042
     Dates: start: 20150903
  25. BEVACIZUMAB [Suspect]
     Active Substance: BEVACIZUMAB
     Dosage: COURSE 02
     Route: 042
     Dates: start: 20150409
  26. IPILIMUMAB [Suspect]
     Active Substance: IPILIMUMAB
     Indication: MALIGNANT MELANOMA
     Dosage: COURSE 1.
     Route: 042
     Dates: start: 20150319
  27. IPILIMUMAB [Suspect]
     Active Substance: IPILIMUMAB
     Dosage: COURSE 16.
     Route: 042
     Dates: start: 20160201
  28. IPILIMUMAB [Suspect]
     Active Substance: IPILIMUMAB
     Dosage: COURSE 2.
     Route: 042
     Dates: start: 20150409

REACTIONS (3)
  - Hyperuricaemia [Recovering/Resolving]
  - Hyperuricaemia [Unknown]
  - Hypertension [Unknown]

NARRATIVE: CASE EVENT DATE: 20150430
